FAERS Safety Report 6733364-4 (Version None)
Quarter: 2010Q2

REPORT INFORMATION
  Report Type: 
  Country: None (occurrence: None)
  Receive Date: 20100520
  Receipt Date: 20100513
  Transmission Date: 20101027
  Serious: Yes (Other)
  Sender: FDA-Public Use
  Company Number: US-PFIZER INC-2010032654

PATIENT
  Sex: Female
  Weight: 58 kg

DRUGS (17)
  1. CHANTIX [Suspect]
     Indication: SMOKING CESSATION THERAPY
     Dosage: 0.5 MG, 1X/DAY
     Route: 048
     Dates: start: 20100201, end: 20100301
  2. CHANTIX [Suspect]
     Indication: CHRONIC OBSTRUCTIVE PULMONARY DISEASE
  3. ZOLEDRONIC ACID [Suspect]
     Indication: OSTEOPOROSIS
     Dosage: UNK
     Dates: start: 20100312
  4. HUMALOG [Concomitant]
     Indication: DIABETES MELLITUS
     Dosage: UNK
  5. LANTUS [Concomitant]
     Indication: DIABETES MELLITUS
     Dosage: 30 IU, UNK
  6. LANTUS [Concomitant]
  7. METAGLIP [Concomitant]
     Indication: DIABETES MELLITUS
     Dosage: 1 G, 2X/DAY
     Route: 048
  8. OXYCODONE [Concomitant]
     Indication: SURGERY
     Dosage: 10 MG, 1X/DAY, 1 TO 2 TABLET
     Route: 048
  9. OXYCODONE [Concomitant]
     Indication: NERVE INJURY
  10. WELLBUTRIN [Concomitant]
     Indication: HYSTERECTOMY
     Dosage: 150 MG, 2X/DAY
  11. ESTRACE [Concomitant]
  12. ADVAIR DISKUS 100/50 [Concomitant]
     Dosage: UNK
  13. PROVENTIL GENTLEHALER [Concomitant]
     Dosage: UNK
  14. LISINOPRIL [Concomitant]
     Dosage: UNK
  15. PRILOSEC [Concomitant]
     Dosage: UNK
  16. NOVOLOG [Concomitant]
     Indication: DIABETES MELLITUS
  17. METFORMIN [Concomitant]
     Indication: DIABETES MELLITUS
     Dosage: 1000 MG, 2X/DAY

REACTIONS (1)
  - BLOOD GLUCOSE INCREASED [None]
